FAERS Safety Report 8803726 (Version 2)
Quarter: 2013Q1

REPORT INFORMATION
  Report Type: Report from Study
  Country: DE (occurrence: DE)
  Receive Date: 20120924
  Receipt Date: 20130111
  Transmission Date: 20140127
  Serious: Yes (Death, Hospitalization, Other)
  Sender: FDA-Public Use
  Company Number: DE-GENZYME-CAMP-1002310

PATIENT
  Sex: Male
  Weight: 59 kg

DRUGS (5)
  1. CAMPATH [Suspect]
     Indication: T-CELL LYMPHOMA
     Dosage: 30 MG, UNK
     Route: 058
     Dates: start: 20080724, end: 20080727
  2. CYCLOPHOSPHAMIDE [Concomitant]
     Indication: T-CELL LYMPHOMA
     Dosage: UNK
     Route: 065
  3. DOXORUBICIN [Concomitant]
     Indication: T-CELL LYMPHOMA
     Dosage: UNK
     Route: 065
  4. VINCRISTINE [Concomitant]
     Indication: T-CELL LYMPHOMA
     Dosage: UNK
     Route: 065
  5. PREDNISONE [Concomitant]
     Indication: T-CELL LYMPHOMA
     Dosage: UNK
     Route: 065

REACTIONS (6)
  - Lymphoma [Fatal]
  - Hepatic congestion [Fatal]
  - Gallbladder disorder [Fatal]
  - Neoplasm [Fatal]
  - T-cell lymphoma recurrent [Fatal]
  - Neoplasm [Recovered/Resolved]
